FAERS Safety Report 5847368-7 (Version None)
Quarter: 2008Q3

REPORT INFORMATION
  Report Type: 
  Country: None (occurrence: None)
  Receive Date: 20080815
  Receipt Date: 20080808
  Transmission Date: 20090109
  Serious: Yes (Hospitalization, Other)
  Sender: FDA-Public Use
  Company Number: HQWYE816304AUG04

PATIENT
  Sex: Female
  Weight: 80.81 kg

DRUGS (6)
  1. PREMARIN [Suspect]
  2. ESTRIOL [Suspect]
  3. ORTHO TRI-CYCLEN [Suspect]
  4. YASMIN [Suspect]
  5. PROGESTERONE [Suspect]
  6. ESTRACE [Suspect]
     Dosage: UNKNOWN
     Dates: start: 19950601, end: 19980501

REACTIONS (1)
  - BREAST CANCER METASTATIC [None]
